FAERS Safety Report 13469176 (Version 5)
Quarter: 2018Q2

REPORT INFORMATION
  Report Type: Spontaneous
  Country: US (occurrence: US)
  Receive Date: 20170421
  Receipt Date: 20180628
  Transmission Date: 20180711
  Serious: Yes (Hospitalization)
  Sender: FDA-Public Use
  Company Number: US-ACTELION-A-US2017-152830

PATIENT
  Age: 29 Year
  Sex: Male
  Weight: 115.65 kg

DRUGS (5)
  1. ADCIRCA [Concomitant]
     Active Substance: TADALAFIL
  2. SPIRONOLACTONE. [Concomitant]
     Active Substance: SPIRONOLACTONE
     Dosage: 50 MG, QPM
     Dates: start: 20180222
  3. ASA [Concomitant]
     Active Substance: ASPIRIN
     Dosage: 81 MG, QPM
     Dates: start: 20150320
  4. VELETRI [Suspect]
     Active Substance: EPOPROSTENOL
     Indication: PULMONARY HYPERTENSION
     Dosage: 12.5 NG/KG, PER MIN
     Route: 042
     Dates: start: 20170918
  5. TORSEMIDE. [Concomitant]
     Active Substance: TORSEMIDE
     Dosage: 20 MG, QD
     Dates: start: 20171027

REACTIONS (6)
  - Pyrexia [Recovered/Resolved]
  - Cough [Unknown]
  - Hospitalisation [Unknown]
  - Application site rash [Unknown]
  - Productive cough [Unknown]
  - Asthenia [Recovered/Resolved]

NARRATIVE: CASE EVENT DATE: 20180524
